FAERS Safety Report 15028278 (Version 4)
Quarter: 2018Q3

REPORT INFORMATION
  Report Type: Spontaneous
  Country: JP (occurrence: JP)
  Receive Date: 20180619
  Receipt Date: 20180813
  Transmission Date: 20181010
  Serious: Yes (Hospitalization)
  Sender: FDA-Public Use
  Company Number: PHJP2018JP011414

PATIENT
  Age: 54 Year
  Sex: Female

DRUGS (4)
  1. PREDONINE [Suspect]
     Active Substance: PREDNISOLONE
     Indication: PSORIASIS
     Dosage: 15 MG, UNK
     Route: 048
     Dates: start: 201707
  2. NEORAL [Suspect]
     Active Substance: CYCLOSPORINE
     Indication: PSORIASIS
     Dosage: 50 MG, BID
     Route: 048
     Dates: start: 201707
  3. COSENTYX [Suspect]
     Active Substance: SECUKINUMAB
     Indication: PSORIASIS
     Dosage: 300 MG, QW
     Route: 058
     Dates: start: 20180511, end: 20180518
  4. NEORAL [Suspect]
     Active Substance: CYCLOSPORINE
     Indication: PEMPHIGOID

REACTIONS (6)
  - Concomitant disease aggravated [Recovered/Resolved]
  - Product use in unapproved indication [Unknown]
  - Headache [Unknown]
  - Nausea [Unknown]
  - Colon cancer [Recovered/Resolved]
  - Meningioma [Recovered/Resolved]

NARRATIVE: CASE EVENT DATE: 201802
